FAERS Safety Report 5982241-5 (Version None)
Quarter: 2008Q4

REPORT INFORMATION
  Report Type: 
  Country: None (occurrence: None)
  Receive Date: 20081208
  Receipt Date: 20081201
  Transmission Date: 20090506
  Serious: Yes (Life-Threatening, Hospitalization)
  Sender: FDA-Public Use
  Company Number: FR-JNJFOC-20081200111

PATIENT
  Sex: Female

DRUGS (4)
  1. MICONAZOLE NITRATE [Suspect]
     Route: 061
     Dates: start: 20081015, end: 20081022
  2. MICONAZOLE NITRATE [Suspect]
     Indication: DRUG EXPOSURE VIA BREAST MILK
     Route: 061
     Dates: start: 20081015, end: 20081022
  3. TRIFLUCAN [Suspect]
     Route: 063
  4. TRIFLUCAN [Suspect]
     Indication: DRUG EXPOSURE VIA BREAST MILK
     Route: 063

REACTIONS (2)
  - DRUG EXPOSURE VIA BREAST MILK [None]
  - LOSS OF CONSCIOUSNESS [None]
